FAERS Safety Report 7228514-X (Version None)
Quarter: 2011Q1

REPORT INFORMATION
  Report Type: 
  Country: None (occurrence: None)
  Receive Date: 20110117
  Receipt Date: 20110107
  Transmission Date: 20110831
  Serious: Yes (Other)
  Sender: FDA-Public Use
  Company Number: US-BIOGENIDEC-2010BI039784

PATIENT
  Age: 65 Year
  Sex: Female

DRUGS (1)
  1. TYSABRI [Suspect]
     Indication: MULTIPLE SCLEROSIS
     Route: 042
     Dates: start: 20060922

REACTIONS (9)
  - MULTIPLE SCLEROSIS [None]
  - SWELLING [None]
  - LUNG DISORDER [None]
  - NEPHROLITHIASIS [None]
  - BRAIN NEOPLASM [None]
  - HEADACHE [None]
  - VENOUS ANGIOMA OF BRAIN [None]
  - MOBILITY DECREASED [None]
  - GENERAL PHYSICAL HEALTH DETERIORATION [None]
